FAERS Safety Report 9636152 (Version 1)
Quarter: 2013Q4

REPORT INFORMATION
  Report Type: Report from Study
  Country: BR (occurrence: BR)
  Receive Date: 20131021
  Receipt Date: 20131021
  Transmission Date: 20140711
  Serious: Yes (Other)
  Sender: FDA-Public Use
  Company Number: BR-ROCHE-1291459

PATIENT
  Age: 67 Year
  Sex: Male
  Weight: 63 kg

DRUGS (6)
  1. INTERFERON ALFA-2A [Suspect]
     Indication: CHRONIC HEPATITIS C
     Route: 065
     Dates: start: 19980722
  2. INTERFERON ALFA-2A [Suspect]
     Route: 065
     Dates: start: 19991027
  3. RIBAVIRIN [Suspect]
     Indication: CHRONIC HEPATITIS C
     Route: 065
     Dates: start: 19980722
  4. RIBAVIRIN [Suspect]
     Route: 065
     Dates: start: 19991027
  5. RIBAVIRIN [Suspect]
     Route: 065
     Dates: start: 20030801
  6. PEG-INTERFERON ALFA 2A [Suspect]
     Indication: CHRONIC HEPATITIS C
     Route: 065
     Dates: start: 20030801

REACTIONS (2)
  - No therapeutic response [Unknown]
  - Hepatitis C [Unknown]
